FAERS Safety Report 5579405-1 (Version None)
Quarter: 2007Q4

REPORT INFORMATION
  Report Type: 
  Country: None (occurrence: None)
  Receive Date: 20071130
  Receipt Date: 20070629
  Transmission Date: 20080405
  Serious: No
  Sender: FDA-Public Use
  Company Number: US200707001179

PATIENT
  Age: 48 Year
  Sex: Male

DRUGS (3)
  1. BYETTA [Suspect]
     Dosage: 5 UG, SUBCUTANEOUS ; 10 UG, SUBCUTANEOUS
     Route: 058
     Dates: start: 20061012, end: 20061023
  2. BYETTA [Suspect]
     Dosage: 5 UG, SUBCUTANEOUS ; 10 UG, SUBCUTANEOUS
     Route: 058
     Dates: start: 20061024, end: 20061120
  3. REGLAN [Concomitant]

REACTIONS (5)
  - ABDOMINAL PAIN [None]
  - ANOREXIA [None]
  - MELAENA [None]
  - NAUSEA [None]
  - VOMITING [None]
